FAERS Safety Report 25153845 (Version 2)
Quarter: 2025Q2

REPORT INFORMATION
  Report Type: Spontaneous
  Country: PT (occurrence: PT)
  Receive Date: 20250403
  Receipt Date: 20250417
  Transmission Date: 20250717
  Serious: Yes (Other)
  Sender: TEVA
  Company Number: PT-TEVA-VS-3315358

PATIENT
  Age: 73 Year
  Sex: Male

DRUGS (9)
  1. TENOFOVIR [Suspect]
     Active Substance: TENOFOVIR
     Indication: HIV infection
     Route: 065
  2. RALTEGRAVIR [Suspect]
     Active Substance: RALTEGRAVIR
     Indication: HIV infection
     Route: 065
  3. DORAVIRINE [Suspect]
     Active Substance: DORAVIRINE
     Indication: HIV infection
     Route: 065
  4. ZIDOVUDINE [Suspect]
     Active Substance: ZIDOVUDINE
     Indication: HIV infection
     Route: 065
  5. RITONAVIR [Suspect]
     Active Substance: RITONAVIR
     Indication: HIV infection
     Route: 065
  6. LAMIVUDINE [Suspect]
     Active Substance: LAMIVUDINE
     Indication: HIV infection
     Route: 065
  7. LOPINAVIR [Suspect]
     Active Substance: LOPINAVIR
     Indication: HIV infection
     Route: 065
  8. DOLUTEGRAVIR [Suspect]
     Active Substance: DOLUTEGRAVIR
     Indication: HIV infection
     Route: 065
  9. DIDANOSINE [Suspect]
     Active Substance: DIDANOSINE
     Indication: HIV infection
     Route: 065

REACTIONS (4)
  - Eyelid ptosis [Unknown]
  - Eye disorder [Unknown]
  - Myopathy [Unknown]
  - Lipodystrophy acquired [Unknown]
